FAERS Safety Report 22379430 (Version 1)
Quarter: 2023Q2

REPORT INFORMATION
  Report Type: Spontaneous
  Country: FR (occurrence: FR)
  Receive Date: 20230529
  Receipt Date: 20230529
  Transmission Date: 20230722
  Serious: Yes (Other)
  Sender: FDA-Public Use
  Company Number: None

PATIENT
  Age: 78 Year
  Sex: Female

DRUGS (2)
  1. CLINDAMYCIN [Suspect]
     Active Substance: CLINDAMYCIN
     Indication: Superinfection bacterial
     Dosage: 300 MG, 2X/DAY
     Route: 048
     Dates: start: 20230406, end: 20230515
  2. RIFAMPIN [Suspect]
     Active Substance: RIFAMPIN
     Indication: Superinfection bacterial
     Dosage: 2 G, 2X/DAY
     Route: 048
     Dates: start: 20230406, end: 20230515

REACTIONS (1)
  - Bicytopenia [Unknown]

NARRATIVE: CASE EVENT DATE: 20230515
